FAERS Safety Report 5616529-4 (Version None)
Quarter: 2008Q1

REPORT INFORMATION
  Report Type: 
  Country: None (occurrence: None)
  Receive Date: 20080204
  Receipt Date: 20080109
  Transmission Date: 20080703
  Serious: Yes (Other)
  Sender: FDA-Public Use
  Company Number: 821#1#2008-00001

PATIENT
  Age: 81 Year
  Sex: Female

DRUGS (16)
  1. ISOKET-0.1% (ISOSORBIDE DINITRATE) [Suspect]
     Dosage: INTRAVENOUS DRIP
     Route: 041
     Dates: start: 20071227, end: 20071227
  2. NATRIUM CHLORIDE 0.9% [Concomitant]
  3. FUROSEMIDE [Concomitant]
  4. POTASSIUM CHLORIDE [Concomitant]
  5. ISOSORBIDE DINITRATE [Concomitant]
  6. METOLAZONE [Concomitant]
  7. OMEPRAZOLE [Concomitant]
  8. ACETYLSALICYLIC ACID SRT [Concomitant]
  9. SIMVASTATIN [Concomitant]
  10. CARVEDILOL [Concomitant]
  11. CAPTOPRIL [Concomitant]
  12. ENOXOPARIN [Concomitant]
  13. HYDROCORTISONE (HYDROCORTISONE) [Concomitant]
  14. AMINOPHYLLIN [Concomitant]
  15. MORPHINE [Concomitant]
  16. NIFEDIPINE [Concomitant]

REACTIONS (2)
  - DRUG INEFFECTIVE [None]
  - PHARMACEUTICAL PRODUCT COMPLAINT [None]
